FAERS Safety Report 9414500 (Version 1)
Quarter: 2013Q3

REPORT INFORMATION
  Report Type: Spontaneous
  Country: DZ (occurrence: DZ)
  Receive Date: 20130723
  Receipt Date: 20130723
  Transmission Date: 20140515
  Serious: Yes (Other)
  Sender: FDA-Public Use
  Company Number: DZ-GLAXOSMITHKLINE-B0909785A

PATIENT
  Age: 9 Year
  Sex: Male

DRUGS (1)
  1. BACTROBAN [Suspect]
     Indication: FURUNCLE
     Route: 061
     Dates: start: 20130714, end: 20130716

REACTIONS (1)
  - Rash generalised [Recovering/Resolving]
